FAERS Safety Report 13797071 (Version 3)
Quarter: 2018Q2

REPORT INFORMATION
  Report Type: Not Available
  Country: US (occurrence: US)
  Receive Date: 20170727
  Receipt Date: 20180419
  Transmission Date: 20180711
  Serious: No
  Sender: FDA-Public Use
  Company Number: US-NEUROCRINE BIOSCIENCES INC.-2017NBI00327

PATIENT
  Age: 45 Year
  Sex: Female

DRUGS (19)
  1. INGREZZA [Suspect]
     Active Substance: VALBENAZINE
     Route: 048
     Dates: start: 20170621, end: 20170622
  2. INGREZZA [Suspect]
     Active Substance: VALBENAZINE
     Route: 048
     Dates: start: 20170625
  3. AMITIZA [Concomitant]
     Active Substance: LUBIPROSTONE
  4. HYDROCODONE-APAP [Concomitant]
     Active Substance: ACETAMINOPHEN\HYDROCODONE
  5. LEXAPRO [Concomitant]
     Active Substance: ESCITALOPRAM OXALATE
  6. LITHIUM. [Concomitant]
     Active Substance: LITHIUM
  7. SUMATRIPTAN. [Concomitant]
     Active Substance: SUMATRIPTAN
  8. ALPRAZOLAM. [Concomitant]
     Active Substance: ALPRAZOLAM
  9. PRAVASTATIN. [Concomitant]
     Active Substance: PRAVASTATIN
  10. PRENATAL VITAMIN [Concomitant]
     Active Substance: VITAMINS
  11. OMEPRAZOLE. [Concomitant]
     Active Substance: OMEPRAZOLE
  12. MULTIVITAMIN [Concomitant]
     Active Substance: VITAMINS
  13. ADDERALL [Concomitant]
     Active Substance: AMPHETAMINE ASPARTATE\AMPHETAMINE SULFATE\DEXTROAMPHETAMINE SACCHARATE\DEXTROAMPHETAMINE SULFATE
  14. EVEKEO [Concomitant]
     Active Substance: AMPHETAMINE SULFATE
  15. INGREZZA [Suspect]
     Active Substance: VALBENAZINE
     Indication: TARDIVE DYSKINESIA
     Dosage: ACCIDENTLY TOOK 80 MG ON 2ND DAY OF TREATMENT
     Route: 048
     Dates: start: 20170614, end: 20170620
  16. MELATONIN [Concomitant]
     Active Substance: MELATONIN
  17. BACLOFEN. [Concomitant]
     Active Substance: BACLOFEN
  18. METHYLPREDNISOLONE. [Concomitant]
     Active Substance: METHYLPREDNISOLONE
  19. ZALEPLON. [Concomitant]
     Active Substance: ZALEPLON

REACTIONS (5)
  - Feeling abnormal [Recovered/Resolved]
  - Wrong dose [Unknown]
  - Dyskinesia [Recovered/Resolved]
  - Dizziness [Recovered/Resolved]
  - Somnolence [Recovered/Resolved]

NARRATIVE: CASE EVENT DATE: 201706
